FAERS Safety Report 18579590 (Version 2)
Quarter: 2021Q1

REPORT INFORMATION
  Report Type: Spontaneous
  Country: US (occurrence: US)
  Receive Date: 20201204
  Receipt Date: 20210227
  Transmission Date: 20210419
  Serious: No
  Sender: FDA-Public Use
  Company Number: US-IPSEN BIOPHARMACEUTICALS, INC.-2020-23830

PATIENT
  Age: 43 Year
  Sex: Female

DRUGS (9)
  1. DYSPORT [Suspect]
     Active Substance: ABOBOTULINUMTOXINA
     Indication: SKIN WRINKLING
  2. AMBIEN [Concomitant]
     Active Substance: ZOLPIDEM TARTRATE
  3. DYSPORT [Suspect]
     Active Substance: ABOBOTULINUMTOXINA
     Indication: OFF LABEL USE
  4. ASCOPHYLLUM NODOSUM [Concomitant]
     Active Substance: ASCOPHYLLUM NODOSUM
  5. GABAPENTIN. [Concomitant]
     Active Substance: GABAPENTIN
  6. TOPAMAX [Concomitant]
     Active Substance: TOPIRAMATE
  7. LAMINARIA DIGITATA (SEAWEED) [Concomitant]
  8. DYSPORT [Suspect]
     Active Substance: ABOBOTULINUMTOXINA
     Indication: SKIN WRINKLING
     Dosage: DOSE NOT REPORTED
     Route: 065
     Dates: start: 20200813, end: 20200813
  9. DYSPORT [Suspect]
     Active Substance: ABOBOTULINUMTOXINA
     Indication: SKIN WRINKLING

REACTIONS (7)
  - Lip swelling [Recovered/Resolved]
  - Facial pain [Recovering/Resolving]
  - Off label use [Unknown]
  - Off label use [Unknown]
  - Hypoaesthesia [Recovered/Resolved]
  - Fatigue [Unknown]
  - Off label use [Unknown]

NARRATIVE: CASE EVENT DATE: 2020
